FAERS Safety Report 18168748 (Version 1)
Quarter: 2020Q3

REPORT INFORMATION
  Report Type: Spontaneous
  Country: US (occurrence: US)
  Receive Date: 20200818
  Receipt Date: 20200818
  Transmission Date: 20201103
  Serious: Yes (Death, Other)
  Sender: FDA-Public Use
  Company Number: None

PATIENT
  Sex: Female
  Weight: 51.3 kg

DRUGS (1)
  1. SOMADERM GEL [Suspect]
     Active Substance: HOMEOPATHICS
     Indication: HORMONE THERAPY
     Dosage: ?          QUANTITY:3.4 OUNCE(S);?
     Route: 042
     Dates: start: 20191112, end: 20200729

REACTIONS (7)
  - Near death experience [None]
  - Middle insomnia [None]
  - Fatigue [None]
  - Heart rate increased [None]
  - Feeling abnormal [None]
  - Product quality issue [None]
  - Product use in unapproved indication [None]
